FAERS Safety Report 9819026 (Version 1)
Quarter: 2014Q1

REPORT INFORMATION
  Report Type: Spontaneous
  Country: US (occurrence: US)
  Receive Date: 20140115
  Receipt Date: 20140115
  Transmission Date: 20141002
  Serious: No
  Sender: FDA-Public Use
  Company Number: US-ENDO PHARMACEUTICALS INC.-PERC20120175

PATIENT
  Age: 54 Year
  Sex: Male

DRUGS (4)
  1. PERCOCET 10MG/325MG [Suspect]
     Indication: ARTHRALGIA
     Dosage: 30/975 MG
     Route: 048
     Dates: start: 201111
  2. PERCOCET 10MG/325MG [Suspect]
     Indication: BACK PAIN
  3. FENTANYL [Suspect]
     Indication: ARTHRALGIA
     Route: 062
     Dates: start: 201111
  4. FENTANYL [Suspect]
     Indication: BACK PAIN

REACTIONS (1)
  - Somnolence [Not Recovered/Not Resolved]
